FAERS Safety Report 23671033 (Version 3)
Quarter: 2025Q1

REPORT INFORMATION
  Report Type: Report from Study
  Country: BR (occurrence: BR)
  Receive Date: 20240326
  Receipt Date: 20250115
  Transmission Date: 20250408
  Serious: Yes (Other)
  Sender: GLAXOSMITHKLINE
  Company Number: BR-GLAXOSMITHKLINE-BR2021AMR104437

PATIENT

DRUGS (2)
  1. BELIMUMAB [Suspect]
     Active Substance: BELIMUMAB
     Indication: Systemic lupus erythematosus
     Dosage: 120 MG, Q4W
     Route: 042
     Dates: start: 20210303
  2. BELIMUMAB [Suspect]
     Active Substance: BELIMUMAB
     Dosage: 600 MG, Q4W,5 X 120 MG
     Route: 042

REACTIONS (7)
  - Heart valve operation [Recovering/Resolving]
  - Appendicectomy [Recovered/Resolved]
  - Ingrowing nail [Recovered/Resolved]
  - Tooth disorder [Unknown]
  - Inappropriate schedule of product administration [Unknown]
  - Product dose omission issue [Unknown]
  - Intentional dose omission [Unknown]

NARRATIVE: CASE EVENT DATE: 20210601
